FAERS Safety Report 4404596-5 (Version None)
Quarter: 2004Q3

REPORT INFORMATION
  Report Type: 
  Country: None (occurrence: None)
  Receive Date: 20040720
  Receipt Date: 20040706
  Transmission Date: 20050211
  Serious: Yes (Life-Threatening, Hospitalization)
  Sender: FDA-Public Use
  Company Number: SP-2004-001781

PATIENT
  Age: 75 Year
  Sex: Male

DRUGS (4)
  1. OLMESARTAN MEDOXOMIL [Suspect]
     Indication: HYPERTENSION
     Dosage: 10 MG QD PO
     Route: 048
  2. RAMIPRIL [Suspect]
     Indication: HYPERTENSION
     Dosage: 5 MG QD PO
     Route: 048
  3. GLICLAZIDE [Concomitant]
  4. ATENOLOL [Concomitant]

REACTIONS (1)
  - HYPERKALAEMIA [None]
